FAERS Safety Report 18551262 (Version 1)
Quarter: 2020Q4

REPORT INFORMATION
  Report Type: Spontaneous
  Country: FR (occurrence: FR)
  Receive Date: 20201126
  Receipt Date: 20201126
  Transmission Date: 20210114
  Serious: Yes (Other)
  Sender: FDA-Public Use
  Company Number: FR-AMGEN-FRASP2020192403

PATIENT
  Age: 51 Year
  Sex: Male

DRUGS (4)
  1. PROCORALAN [Suspect]
     Active Substance: IVABRADINE
     Indication: SUICIDE ATTEMPT
     Dosage: 35 MG, ONE DOSE
     Route: 048
     Dates: start: 20171222, end: 20171222
  2. URBANYL [Suspect]
     Active Substance: CLOBAZAM
     Indication: SUICIDE ATTEMPT
     Dosage: 100 MG, ONE DOSE
     Route: 048
     Dates: start: 20171222, end: 20171222
  3. LAMOTRIGINE. [Suspect]
     Active Substance: LAMOTRIGINE
     Indication: SUICIDE ATTEMPT
     Dosage: 6 DF, ONE DOSE
     Route: 048
     Dates: start: 20171222, end: 20171222
  4. NOZINAN [LEVOMEPROMAZINE HYDROCHLORIDE] [Suspect]
     Active Substance: LEVOMEPROMAZINE HYDROCHLORIDE
     Indication: SUICIDE ATTEMPT
     Dosage: 30 GTT, ONE DOSE
     Route: 048
     Dates: start: 20171222, end: 20171222

REACTIONS (3)
  - Depressed level of consciousness [Recovered/Resolved]
  - Toxicity to various agents [Recovered/Resolved]
  - Psychomotor skills impaired [Recovered/Resolved]

NARRATIVE: CASE EVENT DATE: 20171222
